FAERS Safety Report 9559640 (Version 1)
Quarter: 2013Q2

REPORT INFORMATION
  Report Type: Spontaneous
  Country: US (occurrence: None)
  Receive Date: 20130617
  Receipt Date: 20130617
  Transmission Date: 20140414
  Serious: Yes (Other)
  Sender: FDA-Public Use
  Company Number: EUS-2013-00177

PATIENT
  Age: 14 Year
  Sex: Male

DRUGS (2)
  1. ASPARAGINASE (UNSPECIFIED) (ASPARAGINASE) [Suspect]
     Indication: ACUTE LYMPHOCYTIC LEUKAEMIA
  2. PREDNISONE (PREDNISOLONE) (PREDNISOLONE) [Concomitant]
     Dosage: SINCE INDUCTION DAY 0 ANTAPPER OFF AFTER DAY 28, ORAL

REACTIONS (3)
  - Fibrin D dimer increased [None]
  - Thrombin-antithrombin III complex increased [None]
  - Deep vein thrombosis [None]
